FAERS Safety Report 10562870 (Version 1)
Quarter: 2014Q4

REPORT INFORMATION
  Report Type: Spontaneous
  Country: US (occurrence: None)
  Receive Date: 20141103
  Receipt Date: 20141103
  Transmission Date: 20150529
  Serious: Yes (Hospitalization)
  Sender: FDA-Public Use
  Company Number: None

PATIENT
  Age: 74 Year
  Sex: Female
  Weight: 66.3 kg

DRUGS (2)
  1. STA9090/GENETESPIB [Suspect]
     Active Substance: GANETESPIB
     Indication: BREAST CANCER METASTATIC
     Route: 042
     Dates: start: 20140212, end: 20141001
  2. FULVESTRANT [Suspect]
     Active Substance: FULVESTRANT
     Route: 042
     Dates: start: 20140212, end: 20140924

REACTIONS (5)
  - Abdominal pain [None]
  - Computerised tomogram abnormal [None]
  - Duodenal ulcer perforation [None]
  - Clostridium difficile colitis [None]
  - Hyperglycaemia [None]

NARRATIVE: CASE EVENT DATE: 20141008
